APPROVED DRUG PRODUCT: DOBUTAMINE HYDROCHLORIDE
Active Ingredient: DOBUTAMINE HYDROCHLORIDE
Strength: EQ 12.5MG BASE/ML
Dosage Form/Route: INJECTABLE;INJECTION
Application: A074381 | Product #001
Applicant: BAXTER HEALTHCARE CORP ANESTHESIA AND CRITICAL CARE
Approved: Sep 26, 1996 | RLD: No | RS: No | Type: DISCN